FAERS Safety Report 9350285 (Version 2)
Quarter: 2013Q3

REPORT INFORMATION
  Report Type: Spontaneous
  Country: US (occurrence: US)
  Receive Date: 20130617
  Receipt Date: 20130807
  Transmission Date: 20140515
  Serious: No
  Sender: FDA-Public Use
  Company Number: US-ASTRAZENECA-2013SE40637

PATIENT
  Age: 72 Year
  Sex: Female
  Weight: 87.5 kg

DRUGS (12)
  1. SYMBICORT [Suspect]
     Indication: CHRONIC OBSTRUCTIVE PULMONARY DISEASE
     Dosage: 160/4.5MCG , 2 PUFFS, TWO TIMES A DAY
     Route: 055
     Dates: start: 2013
  2. SPIRIVA [Concomitant]
     Indication: CHRONIC OBSTRUCTIVE PULMONARY DISEASE
     Dosage: 1 PUFF DAILY
     Dates: start: 201303
  3. RANITIDINE [Concomitant]
     Indication: GASTRIC DISORDER
     Dates: start: 1998
  4. SERTRALINE [Concomitant]
     Indication: DEPRESSION
  5. ALPRAZOLAM [Concomitant]
  6. SIMVASTATIN [Concomitant]
     Dates: start: 2011
  7. CARVEDIALOL(COREG) [Concomitant]
     Indication: CARDIAC DISORDER
     Dosage: 2 DAILY
     Dates: start: 2011
  8. AMLODIPINE [Concomitant]
     Indication: CARDIAC DISORDER
     Dates: start: 201304
  9. FUROSEMIDE [Concomitant]
     Indication: FLUID RETENTION
     Dates: start: 2011
  10. CLOPIDPGREL [Concomitant]
     Dates: start: 2011
  11. POTCL MICRO(POTASSIUM) [Concomitant]
     Dates: start: 2011
  12. BABY ASPIRIN [Concomitant]
     Indication: CARDIAC DISORDER
     Dates: start: 2011

REACTIONS (4)
  - Gastric disorder [Unknown]
  - Visual impairment [Unknown]
  - Blood pressure abnormal [Unknown]
  - Drug ineffective [Unknown]
